FAERS Safety Report 4952863-9 (Version None)
Quarter: 2006Q1

REPORT INFORMATION
  Report Type: 
  Country: None (occurrence: None)
  Receive Date: 20060321
  Receipt Date: 20060308
  Transmission Date: 20060701
  Serious: Yes (Other)
  Sender: FDA-Public Use
  Company Number: 222478

PATIENT
  Age: 40 Year
  Sex: Female

DRUGS (8)
  1. XOLAIR [Suspect]
     Indication: ASTHMA
     Dosage: 300 MG, 2/WEEK,
     Dates: start: 20051201
  2. BETA BLOCKING AGENTS (BETA BLOCKERS NOS) [Concomitant]
  3. STEROIDS (STEROID NOS) [Concomitant]
  4. IPRATROPIUM BROMIDE [Concomitant]
  5. THEOPHYLLINE [Concomitant]
  6. SERETIDE DISKUS (FLUTICASONE PROPIONATE, SALMETEROL XINAFOATE) [Concomitant]
  7. SINGULAIR [Concomitant]
  8. PREDNISONE TAB [Concomitant]

REACTIONS (6)
  - ABDOMINAL PAIN [None]
  - ALANINE AMINOTRANSFERASE INCREASED [None]
  - BLOOD LACTATE DEHYDROGENASE INCREASED [None]
  - DIARRHOEA [None]
  - GAMMA-GLUTAMYLTRANSFERASE INCREASED [None]
  - VOMITING [None]
